FAERS Safety Report 25377331 (Version 1)
Quarter: 2025Q2

REPORT INFORMATION
  Report Type: Spontaneous
  Country: BA (occurrence: BA)
  Receive Date: 20250530
  Receipt Date: 20250530
  Transmission Date: 20250717
  Serious: Yes (Other)
  Sender: NOVARTIS
  Company Number: BA-002147023-NVSC2025BA082732

PATIENT
  Sex: Female

DRUGS (4)
  1. KISQALI [Suspect]
     Active Substance: RIBOCICLIB SUCCINATE
     Indication: Breast cancer
     Route: 065
     Dates: start: 202202
  2. FEMARA [Suspect]
     Active Substance: LETROZOLE
     Indication: Breast cancer
     Dosage: 2.5 MG, QD (1X1)
     Route: 065
     Dates: start: 202109
  3. BISOPROLOL [Concomitant]
     Active Substance: BISOPROLOL
     Indication: Product used for unknown indication
     Route: 065
  4. ALLOPURINOL [Concomitant]
     Active Substance: ALLOPURINOL
     Indication: Product used for unknown indication
     Route: 065

REACTIONS (8)
  - Cataract [Unknown]
  - Leukopenia [Unknown]
  - Urinary tract inflammation [Unknown]
  - Renal cyst [Unknown]
  - Osteopenia [Unknown]
  - Large intestine polyp [Unknown]
  - Inguinal hernia [Unknown]
  - Femoral hernia [Unknown]

NARRATIVE: CASE EVENT DATE: 20230401
